FAERS Safety Report 14336725 (Version 2)
Quarter: 2018Q1

REPORT INFORMATION
  Report Type: Spontaneous
  Country: JP (occurrence: JP)
  Receive Date: 20171229
  Receipt Date: 20180208
  Transmission Date: 20180509
  Serious: Yes (Other)
  Sender: FDA-Public Use
  Company Number: JP-GLAXOSMITHKLINE-JP2017JPN200744

PATIENT
  Age: 71 Year
  Sex: Male

DRUGS (3)
  1. UBRETID [Concomitant]
     Active Substance: DISTIGMINE BROMIDE
     Indication: NEUROGENIC BLADDER
     Dosage: 5 MG, QD
     Dates: end: 20150304
  2. AVOLVE [Suspect]
     Active Substance: DUTASTERIDE
     Indication: BENIGN PROSTATIC HYPERPLASIA
     Dosage: 0.5 MG, QD
     Route: 048
     Dates: start: 20150602, end: 20150707
  3. URIEF [Concomitant]
     Active Substance: SILODOSIN
     Indication: BENIGN PROSTATIC HYPERPLASIA
     Dosage: 4 MG, BID

REACTIONS (2)
  - Drug eruption [Unknown]
  - Erythema multiforme [Unknown]

NARRATIVE: CASE EVENT DATE: 201506
